FAERS Safety Report 9376341 (Version 5)
Quarter: 2016Q2

REPORT INFORMATION
  Report Type: Spontaneous
  Country: DE (occurrence: DE)
  Receive Date: 20130701
  Receipt Date: 20160530
  Transmission Date: 20160815
  Serious: Yes (Other)
  Sender: FDA-Public Use
  Company Number: DE-JNJFOC-20130613439

PATIENT

DRUGS (13)
  1. ABCIXIMAB [Suspect]
     Active Substance: ABCIXIMAB
     Indication: MYOCARDIAL INFARCTION
     Route: 022
  2. ASPIRIN. [Concomitant]
     Active Substance: ASPIRIN
     Route: 065
  3. ABCIXIMAB [Suspect]
     Active Substance: ABCIXIMAB
     Indication: MYOCARDIAL INFARCTION
     Route: 040
  4. ABCIXIMAB [Suspect]
     Active Substance: ABCIXIMAB
     Indication: PERCUTANEOUS CORONARY INTERVENTION
     Route: 022
  5. ABCIXIMAB [Suspect]
     Active Substance: ABCIXIMAB
     Indication: MYOCARDIAL INFARCTION
     Dosage: 12 HOUR ADJUSTED INTRAVENOUS INFUSION
     Route: 040
  6. STATINS [Concomitant]
     Active Substance: UNSPECIFIED INGREDIENT
     Route: 065
  7. BETA BLOCKERS, NOS [Concomitant]
     Active Substance: UNSPECIFIED INGREDIENT
     Route: 065
  8. ABCIXIMAB [Suspect]
     Active Substance: ABCIXIMAB
     Indication: PERCUTANEOUS CORONARY INTERVENTION
     Route: 040
  9. ACE INHIBITORS [Concomitant]
     Active Substance: UNSPECIFIED INGREDIENT
     Route: 065
  10. CLOPIDOGREL [Concomitant]
     Active Substance: CLOPIDOGREL BISULFATE
     Route: 065
  11. PRASUGREL [Concomitant]
     Active Substance: PRASUGREL
     Route: 065
  12. ALDOSTERONE ANTAGONISTS [Concomitant]
     Route: 065
  13. ABCIXIMAB [Suspect]
     Active Substance: ABCIXIMAB
     Indication: PERCUTANEOUS CORONARY INTERVENTION
     Dosage: 12 HOUR ADJUSTED INTRAVENOUS INFUSION
     Route: 040

REACTIONS (7)
  - Vascular occlusion [Unknown]
  - Incorrect route of drug administration [Unknown]
  - Myocardial haemorrhage [Unknown]
  - Left ventricular dysfunction [Unknown]
  - Cardiac disorder [Unknown]
  - Infarction [Unknown]
  - Cardiac failure congestive [Unknown]
